FAERS Safety Report 8347497-2 (Version None)
Quarter: 2012Q2

REPORT INFORMATION
  Report Type: 
  Country: None (occurrence: None)
  Receive Date: 20120509
  Receipt Date: 20120502
  Transmission Date: 20120825
  Serious: Yes (Death, Hospitalization)
  Sender: FDA-Public Use
  Company Number: DE-ASTRAZENECA-2012SE16920

PATIENT
  Age: 55 Year
  Sex: Male

DRUGS (7)
  1. FOSCAVIR [Suspect]
     Indication: ENCEPHALITIS CYTOMEGALOVIRUS
     Route: 042
  2. IMMUNOGLOBULIN G [Concomitant]
     Route: 042
  3. THIOTEPA [Concomitant]
  4. FLUDARABINE PHOSPHATE [Concomitant]
  5. ANTITHYMOCYTE-GLOBULINE ATG/RABBIT ANTI-HUMAN THYMOCYTE IMMUNOGLOBULIN [Concomitant]
  6. IMMUNOGLOBULIN A/IMMUNOGLOBULINS [Concomitant]
     Route: 042
  7. MELPHALAN HYDROCHLORIDE [Concomitant]

REACTIONS (9)
  - PARAESTHESIA [None]
  - URINARY RETENTION [None]
  - SENSORY LOSS [None]
  - CYTOMEGALOVIRUS MYELOMENINGORADICULITIS [None]
  - QUADRIPARESIS [None]
  - ENCEPHALITIS CYTOMEGALOVIRUS [None]
  - HYPOREFLEXIA [None]
  - MUSCULAR WEAKNESS [None]
  - CONFUSIONAL STATE [None]
